FAERS Safety Report 6732710-5 (Version None)
Quarter: 2010Q2

REPORT INFORMATION
  Report Type: 
  Country: None (occurrence: None)
  Receive Date: 20100514
  Receipt Date: 20100430
  Transmission Date: 20101027
  Serious: Yes (Hospitalization)
  Sender: FDA-Public Use
  Company Number: FR-1181823

PATIENT
  Age: 24 Month
  Sex: Female

DRUGS (1)
  1. ATROPINE SULFATE [Suspect]
     Dosage: 1 GTT BID OPHTHALMIC
     Route: 047
     Dates: start: 20100403, end: 20100407

REACTIONS (4)
  - BALANCE DISORDER [None]
  - CONVULSION [None]
  - GAIT DISTURBANCE [None]
  - VOMITING [None]
